FAERS Safety Report 19614362 (Version 3)
Quarter: 2021Q4

REPORT INFORMATION
  Report Type: Spontaneous
  Country: US (occurrence: US)
  Receive Date: 20210727
  Receipt Date: 20211001
  Transmission Date: 20220304
  Serious: Yes (Hospitalization)
  Sender: FDA-Public Use
  Company Number: US-009507513-2107USA007384

PATIENT
  Sex: Male

DRUGS (4)
  1. EMEND [Suspect]
     Active Substance: APREPITANT
     Indication: Nausea
     Dosage: DOES NOT TAKE EMEND EVERY DAY BUT ONCE EVERY THREE TO FIVE DAYS
     Route: 048
     Dates: start: 2019
  2. EMEND [Suspect]
     Active Substance: APREPITANT
     Indication: Vomiting
     Dosage: DOES NOT TAKE EMEND EVERY DAY BUT ONCE EVERY THREE TO FIVE DAYS
     Route: 048
  3. AMITRIPTYLINE [Concomitant]
     Active Substance: AMITRIPTYLINE
  4. VALIUM [Concomitant]
     Active Substance: DIAZEPAM

REACTIONS (4)
  - Therapeutic product effect decreased [Not Recovered/Not Resolved]
  - Suspected product tampering [Unknown]
  - Inappropriate schedule of product administration [Unknown]
  - Product use in unapproved indication [Unknown]

NARRATIVE: CASE EVENT DATE: 20190101
